FAERS Safety Report 25921948 (Version 1)
Quarter: 2025Q4

REPORT INFORMATION
  Report Type: Spontaneous
  Country: EU (occurrence: EU)
  Receive Date: 20251015
  Receipt Date: 20251015
  Transmission Date: 20260118
  Serious: Yes (Other)
  Sender: GLAXOSMITHKLINE
  Company Number: None

PATIENT
  Age: 64 Year
  Sex: Female

DRUGS (1)
  1. NUCALA [Suspect]
     Active Substance: MEPOLIZUMAB
     Indication: Nasal polyps
     Dosage: 1 DF, Q4W 1 INJECTION EVERY 28 DAYS

REACTIONS (4)
  - Fatigue [Recovered/Resolved]
  - Arthralgia [Unknown]
  - Mobility decreased [Unknown]
  - Depression [Unknown]

NARRATIVE: CASE EVENT DATE: 20250505
